FAERS Safety Report 11829851 (Version 1)
Quarter: 2015Q4

REPORT INFORMATION
  Report Type: Spontaneous
  Country: US (occurrence: US)
  Receive Date: 20151212
  Receipt Date: 20151212
  Transmission Date: 20160305
  Serious: No
  Sender: FDA-Public Use
  Company Number: US-BAUSCH-BL-2015-026042

PATIENT
  Sex: Female

DRUGS (1)
  1. TIMOPTIC [Suspect]
     Active Substance: TIMOLOL MALEATE
     Indication: INTRAOCULAR PRESSURE TEST
     Dosage: ONE VIAL DAILY
     Route: 047

REACTIONS (1)
  - Off label use [Not Recovered/Not Resolved]
